FAERS Safety Report 24311733 (Version 1)
Quarter: 2024Q3

REPORT INFORMATION
  Report Type: Spontaneous
  Country: US (occurrence: US)
  Receive Date: 20240912
  Receipt Date: 20240912
  Transmission Date: 20241016
  Serious: No
  Sender: BRISTOL MYERS SQUIBB
  Company Number: US-BRISTOL-MYERS SQUIBB COMPANY-2024-137814

PATIENT

DRUGS (2)
  1. YERVOY [Suspect]
     Active Substance: IPILIMUMAB
     Indication: Product used for unknown indication
     Dosage: DOSE: 50MG/10ML?(36 VIALS)
  2. YERVOY [Suspect]
     Active Substance: IPILIMUMAB
     Dosage: DOSE: 50MG/10ML?(5 VIALS)

REACTIONS (1)
  - Product storage error [Unknown]
